FAERS Safety Report 21300216 (Version 2)
Quarter: 2022Q3

REPORT INFORMATION
  Report Type: Report from Study
  Country: GB (occurrence: GB)
  Receive Date: 20220906
  Receipt Date: 20220907
  Transmission Date: 20221026
  Serious: Yes (Hospitalization, Other)
  Sender: FDA-Public Use
  Company Number: GB-BRISTOL-MYERS SQUIBB COMPANY-BMS-2021-115830

PATIENT
  Age: 71 Year
  Sex: Female

DRUGS (3)
  1. ORENCIA [Suspect]
     Active Substance: ABATACEPT
     Indication: Rheumatoid arthritis
     Dosage: WEEKLY
     Route: 058
     Dates: start: 20211008
  2. ORENCIA [Suspect]
     Active Substance: ABATACEPT
     Dosage: WEEKLY
     Route: 058
     Dates: start: 202109
  3. HYDROXYCHLOROQUINE SULFATE [Concomitant]
     Active Substance: HYDROXYCHLOROQUINE SULFATE
     Indication: Arthritis
     Dosage: 200 MILLIGRAM
     Route: 048

REACTIONS (6)
  - Arthropathy [Unknown]
  - Arthralgia [Unknown]
  - Lower respiratory tract infection [Unknown]
  - Urinary tract infection [Unknown]
  - Pain in extremity [Unknown]
  - Genitourinary tract infection [Unknown]

NARRATIVE: CASE EVENT DATE: 20211101
